FAERS Safety Report 7930149-8 (Version None)
Quarter: 2011Q4

REPORT INFORMATION
  Report Type: 
  Country: None (occurrence: None)
  Receive Date: 20111118
  Receipt Date: 20111118
  Transmission Date: 20120403
  Serious: Yes (Death)
  Sender: FDA-Public Use
  Company Number: None

PATIENT
  Age: 76 Year
  Sex: Male

DRUGS (9)
  1. LOSARTAN POTASSIUM [Concomitant]
  2. INSULIN [Concomitant]
  3. INDOMETHACIN [Concomitant]
  4. REVLIMID [Suspect]
     Indication: MULTIPLE MYELOMA
     Dosage: 5MG TWICE WEEKLY ORALLY
     Route: 048
     Dates: start: 20101101, end: 20110501
  5. METOPROLOL TARTRATE [Concomitant]
  6. ALLOPURINOL [Concomitant]
  7. FINASTERIDE [Concomitant]
  8. ALENDRONATE SODIUM [Concomitant]
  9. LASIX [Concomitant]

REACTIONS (3)
  - MULTIPLE MYELOMA [None]
  - PANCYTOPENIA [None]
  - NEOPLASM PROGRESSION [None]
